FAERS Safety Report 7197441-9 (Version None)
Quarter: 2010Q4

REPORT INFORMATION
  Report Type: 
  Country: None (occurrence: None)
  Receive Date: 20101227
  Receipt Date: 20101217
  Transmission Date: 20110411
  Serious: Yes (Death)
  Sender: FDA-Public Use
  Company Number: US-CELGENEUS-163-22393-10112128

PATIENT
  Sex: Male

DRUGS (1)
  1. ISTODAX [Suspect]
     Route: 051
     Dates: start: 20101001, end: 20101015

REACTIONS (1)
  - MYCOSIS FUNGOIDES [None]
